FAERS Safety Report 10167732 (Version 1)
Quarter: 2014Q2

REPORT INFORMATION
  Report Type: Report from Study
  Country: CA (occurrence: CA)
  Receive Date: 20140512
  Receipt Date: 20140512
  Transmission Date: 20141212
  Serious: Yes (Other)
  Sender: FDA-Public Use
  Company Number: CA-ABBVIE-14P-028-1234255-00

PATIENT
  Sex: Male

DRUGS (2)
  1. HUMIRA [Suspect]
     Indication: PSORIASIS
     Route: 058
     Dates: start: 20130705, end: 20140320
  2. HUMIRA [Suspect]
     Dates: start: 20140502

REACTIONS (2)
  - Limb deformity [Recovering/Resolving]
  - Arthropathy [Recovering/Resolving]
